FAERS Safety Report 12384271 (Version 2)
Quarter: 2018Q2

REPORT INFORMATION
  Report Type: Spontaneous
  Country: CA (occurrence: CA)
  Receive Date: 20160519
  Receipt Date: 20180420
  Transmission Date: 20180711
  Serious: Yes (Death, Other)
  Sender: FDA-Public Use
  Company Number: CA-BIOVITRUM-2014CA0216

PATIENT
  Age: 16 Year
  Sex: Female

DRUGS (9)
  1. ENBREL [Suspect]
     Active Substance: ETANERCEPT
     Indication: JUVENILE IDIOPATHIC ARTHRITIS
     Dosage: 10 MG BIWEEKLY
  2. PREDNISONE. [Concomitant]
     Active Substance: PREDNISONE
  3. ETOPOSIDE. [Suspect]
     Active Substance: ETOPOSIDE
     Indication: PRODUCT USED FOR UNKNOWN INDICATION
  4. TACROLIMUS. [Concomitant]
     Active Substance: TACROLIMUS
  5. THALIDOMIDE [Concomitant]
     Active Substance: THALIDOMIDE
  6. ANAKINRA [Suspect]
     Active Substance: ANAKINRA
     Indication: JUVENILE IDIOPATHIC ARTHRITIS
  7. MTX [Concomitant]
     Active Substance: METHOTREXATE SODIUM
  8. CYCLOSPORIN A [Concomitant]
     Active Substance: CYCLOSPORINE
  9. INFLIXIMAB [Suspect]
     Active Substance: INFLIXIMAB
     Indication: JUVENILE IDIOPATHIC ARTHRITIS
     Dosage: 10 MG/KG MONTHLY

REACTIONS (1)
  - Hepatosplenic T-cell lymphoma [Fatal]

NARRATIVE: CASE EVENT DATE: 2009
